FAERS Safety Report 9694525 (Version 1)
Quarter: 2013Q4

REPORT INFORMATION
  Report Type: Spontaneous
  Country: AU (occurrence: AU)
  Receive Date: 20131118
  Receipt Date: 20131118
  Transmission Date: 20140711
  Serious: Yes (Other)
  Sender: FDA-Public Use
  Company Number: AU-ABBVIE-13P-008-1158163-00

PATIENT
  Sex: Female

DRUGS (2)
  1. SODIUM VALPROATE [Suspect]
     Indication: PRODUCT USED FOR UNKNOWN INDICATION
  2. ABILIFY [Suspect]
     Indication: PRODUCT USED FOR UNKNOWN INDICATION

REACTIONS (8)
  - Paralysis [Unknown]
  - Heart rate decreased [Unknown]
  - Peripheral coldness [Unknown]
  - Palpitations [Unknown]
  - Tinnitus [Unknown]
  - Vision blurred [Unknown]
  - Alopecia [Unknown]
  - Nausea [Unknown]
